FAERS Safety Report 8646606 (Version 5)
Quarter: 2012Q4

REPORT INFORMATION
  Report Type: 
  Country: ES (occurrence: ES)
  Receive Date: 20120702
  Receipt Date: 20121206
  Transmission Date: 20130627
  Serious: Yes (Hospitalization, Disabling, Other)
  Sender: FDA-Public Use
  Company Number: ES-ALLERGAN-1208772US

PATIENT
  Age: 56 Year
  Sex: Male

DRUGS (2)
  1. OZURDEX [Suspect]
     Indication: VENOUS THROMBOSIS
     Dosage: 0.7 mg, single
     Route: 031
     Dates: start: 20120609, end: 20120609
  2. UNSPECIFIED DIABETIC TREATMENT [Concomitant]
     Indication: DIABETES
     Dosage: UNK

REACTIONS (4)
  - Blindness [Not Recovered/Not Resolved]
  - Atrophy of globe [Not Recovered/Not Resolved]
  - Retinal detachment [Unknown]
  - Endophthalmitis [Not Recovered/Not Resolved]
